FAERS Safety Report 10628975 (Version 1)
Quarter: 2014Q4

REPORT INFORMATION
  Report Type: Spontaneous
  Country: US (occurrence: US)
  Receive Date: 20141205
  Receipt Date: 20141205
  Transmission Date: 20150529
  Serious: No
  Sender: FDA-Public Use
  Company Number: US-BRISTOL-MYERS SQUIBB COMPANY-21518519

PATIENT
  Age: 58 Year
  Sex: Female

DRUGS (8)
  1. PREDNISONE. [Suspect]
     Active Substance: PREDNISONE
     Dosage: 40-50 MG?DOWN TO 4 MG?5 MG TO 6 MG
  2. CLOTRIMAZOLE. [Concomitant]
     Active Substance: CLOTRIMAZOLE
  3. FOLIC ACID. [Concomitant]
     Active Substance: FOLIC ACID
  4. WARFARIN SODIUM. [Suspect]
     Active Substance: WARFARIN SODIUM
     Dosage: GO DOWN TO 2MG OR UP TO 3 1/2 MG AT TIMES
  5. LEUCOVORIN [Concomitant]
     Active Substance: LEUCOVORIN
  6. SYNTHROID [Concomitant]
     Active Substance: LEVOTHYROXINE SODIUM
  7. METHOTREXATE [Suspect]
     Active Substance: METHOTREXATE
     Dosage: 10 MG
  8. VITAMIN D [Concomitant]
     Active Substance: CHOLECALCIFEROL

REACTIONS (5)
  - Chest pain [Not Recovered/Not Resolved]
  - Non-cardiac chest pain [Recovered/Resolved]
  - Hypersensitivity [Unknown]
  - Malaise [Recovered/Resolved]
  - Back pain [Not Recovered/Not Resolved]
